FAERS Safety Report 4324702-0 (Version None)
Quarter: 2004Q1

REPORT INFORMATION
  Report Type: 
  Country: None (occurrence: None)
  Receive Date: 20040325
  Receipt Date: 20040325
  Transmission Date: 20041129
  Serious: Yes (Death)
  Sender: FDA-Public Use
  Company Number: None

PATIENT
  Age: 51 Year
  Sex: Female

DRUGS (1)
  1. COUMADIN [Suspect]
     Dosage: PO
     Route: 048

REACTIONS (5)
  - BRAIN HERNIATION [None]
  - CARDIO-RESPIRATORY ARREST [None]
  - CEREBRAL HAEMORRHAGE [None]
  - CONVULSION [None]
  - LOSS OF CONSCIOUSNESS [None]
